FAERS Safety Report 6851130-6 (Version None)
Quarter: 2010Q3

REPORT INFORMATION
  Report Type: 
  Country: None (occurrence: None)
  Receive Date: 20100716
  Receipt Date: 20071025
  Transmission Date: 20110219
  Serious: No
  Sender: FDA-Public Use
  Company Number: US-PFIZER INC-2007091578

PATIENT
  Sex: Female
  Weight: 60.3 kg

DRUGS (2)
  1. CHANTIX [Suspect]
     Indication: SMOKING CESSATION THERAPY
     Dates: start: 20071004
  2. SYNTHROID [Concomitant]

REACTIONS (8)
  - ARTHROPOD BITE [None]
  - DECREASED APPETITE [None]
  - DIARRHOEA [None]
  - FEELING ABNORMAL [None]
  - HAEMORRHOIDS [None]
  - INSOMNIA [None]
  - MIDDLE INSOMNIA [None]
  - URINE OUTPUT INCREASED [None]
